FAERS Safety Report 7422635-4 (Version None)
Quarter: 2011Q2

REPORT INFORMATION
  Report Type: 
  Country: None (occurrence: None)
  Receive Date: 20110419
  Receipt Date: 20110414
  Transmission Date: 20111010
  Serious: Yes (Hospitalization, Other)
  Sender: FDA-Public Use
  Company Number: US-ELI_LILLY_AND_COMPANY-US201104004293

PATIENT
  Age: 39 Year
  Sex: Female
  Weight: 84.807 kg

DRUGS (1)
  1. BYETTA [Suspect]
     Indication: TYPE 2 DIABETES MELLITUS
     Dosage: 10 UG, BID
     Route: 048
     Dates: start: 20100101

REACTIONS (1)
  - TRANSIENT ISCHAEMIC ATTACK [None]
